FAERS Safety Report 15659679 (Version 4)
Quarter: 2019Q1

REPORT INFORMATION
  Report Type: Report from Study
  Country: GB (occurrence: GB)
  Receive Date: 20181127
  Receipt Date: 20190225
  Transmission Date: 20190417
  Serious: Yes (Hospitalization)
  Sender: FDA-Public Use
  Company Number: GB-TAKEDA-2018MPI009148

PATIENT
  Age: 80 Year
  Sex: Male

DRUGS (4)
  1. LENALIDOMIDE [Suspect]
     Active Substance: LENALIDOMIDE
     Indication: PRODUCT USED FOR UNKNOWN INDICATION
     Dosage: 25 MG, UNK
     Route: 065
  2. IXAZOMIB [Suspect]
     Active Substance: IXAZOMIB
     Indication: PLASMA CELL MYELOMA
     Dosage: UNK
     Route: 048
     Dates: start: 20180626
  3. DEXAMETHASONE. [Suspect]
     Active Substance: DEXAMETHASONE
     Indication: PRODUCT USED FOR UNKNOWN INDICATION
     Dosage: 40 MG, UNK
     Route: 065
  4. LENALIDOMIDE [Suspect]
     Active Substance: LENALIDOMIDE
     Dosage: 10 MG, UNK
     Route: 065

REACTIONS (15)
  - Lower respiratory tract infection [Unknown]
  - Syncope [Unknown]
  - Fluid retention [Unknown]
  - Pain in extremity [Unknown]
  - Peripheral swelling [Unknown]
  - Nausea [Unknown]
  - Hypoaesthesia [Unknown]
  - Pyrexia [Unknown]
  - Constipation [Recovered/Resolved]
  - Limb discomfort [Unknown]
  - Paraesthesia [Unknown]
  - Protein total abnormal [Unknown]
  - Fatigue [Unknown]
  - Joint swelling [Unknown]
  - Neuropathy peripheral [Unknown]
